FAERS Safety Report 16578406 (Version 2)
Quarter: 2019Q3

REPORT INFORMATION
  Report Type: Report from Study
  Country: JP (occurrence: JP)
  Receive Date: 20190716
  Receipt Date: 20190920
  Transmission Date: 20191004
  Serious: Yes (Death, Hospitalization)
  Sender: FDA-Public Use
  Company Number: JP-ACTELION-A-CH2019-192974

PATIENT
  Age: 76 Year
  Sex: Female
  Weight: 48.2 kg

DRUGS (8)
  1. OPALMON [Concomitant]
     Active Substance: LIMAPROST
  2. PLETAAL [Concomitant]
     Active Substance: CILOSTAZOL
  3. TRACLEER [Suspect]
     Active Substance: BOSENTAN
     Indication: SCLERODERMA ASSOCIATED DIGITAL ULCER
     Dosage: 62.5 MG, BID
     Route: 048
     Dates: start: 20170404, end: 20180414
  4. JUVELA N [Concomitant]
     Active Substance: TOCOPHERYL NICOTINATE, D-.ALPHA.
  5. MAGMITT [Concomitant]
     Active Substance: MAGNESIUM OXIDE
  6. BIOLACTIS [Concomitant]
     Active Substance: LACTOBACILLUS CASEI
  7. ANPLAG [Concomitant]
     Active Substance: SARPOGRELATE
  8. BERASUS [Concomitant]
     Active Substance: BERAPROST SODIUM

REACTIONS (3)
  - Lung neoplasm malignant [Fatal]
  - Cough [Fatal]
  - Dyspnoea exertional [Fatal]

NARRATIVE: CASE EVENT DATE: 20170404
